FAERS Safety Report 7802361-X (Version None)
Quarter: 2011Q4

REPORT INFORMATION
  Report Type: 
  Country: None (occurrence: None)
  Receive Date: 20111007
  Receipt Date: 20110928
  Transmission Date: 20120403
  Serious: Yes (Hospitalization)
  Sender: FDA-Public Use
  Company Number: AU-ROCHE-744944

PATIENT
  Sex: Male
  Weight: 90 kg

DRUGS (7)
  1. PEG-INTERFERON ALFA 2A [Suspect]
     Indication: HEPATITIS C
     Dosage: FREQUENCY: WEEKLY
     Route: 058
  2. METOPROLOL TARTRATE [Concomitant]
     Indication: HYPERTENSION
  3. OLMESARTAN MEDOXOMIL [Concomitant]
     Indication: HYPERTENSION
  4. ADALAT [Concomitant]
     Indication: HYPERTENSION
  5. CITALOPRAM HYDROBROMIDE [Concomitant]
     Indication: MOOD SWINGS
  6. COPEGUS [Suspect]
     Indication: HEPATITIS C
     Route: 048
  7. ATACAND [Concomitant]
     Indication: HYPERTENSION
     Dosage: DRUG REPORTED AS CANDESARTAN CILEXETIL

REACTIONS (1)
  - CHOLECYSTITIS [None]
